FAERS Safety Report 10189329 (Version 1)
Quarter: 2014Q2

REPORT INFORMATION
  Report Type: Spontaneous
  Country: US (occurrence: US)
  Receive Date: 20140522
  Receipt Date: 20140522
  Transmission Date: 20141212
  Serious: No
  Sender: FDA-Public Use
  Company Number: US-009507513-1405USA004459

PATIENT
  Sex: 0

DRUGS (3)
  1. CLARITIN CHEWABLE TABLETS [Suspect]
     Indication: LACRIMATION INCREASED
     Dosage: UNK, UNKNOWN
     Route: 048
  2. CLARITIN CHEWABLE TABLETS [Suspect]
     Indication: SNEEZING
  3. CLARITIN CHEWABLE TABLETS [Suspect]
     Indication: HYPERSENSITIVITY

REACTIONS (1)
  - Drug effect decreased [Unknown]
